FAERS Safety Report 21048191 (Version 1)
Quarter: 2022Q3

REPORT INFORMATION
  Report Type: Spontaneous
  Country: DE (occurrence: DE)
  Receive Date: 20220706
  Receipt Date: 20220706
  Transmission Date: 20221027
  Serious: Yes (Other)
  Sender: FDA-Public Use
  Company Number: None

PATIENT
  Age: 85 Year
  Sex: Female

DRUGS (13)
  1. MIRTAZAPINE [Suspect]
     Active Substance: MIRTAZAPINE
     Dosage: 30 MILLIGRAM, QD
     Dates: start: 20220406
  2. MIRTAZAPINE [Suspect]
     Active Substance: MIRTAZAPINE
     Dosage: 15 MILLIGRAM, QD
     Dates: start: 20220405
  3. MIRTAZAPINE [Suspect]
     Active Substance: MIRTAZAPINE
     Dosage: 7.5 MILLIGRAM, QD
     Dates: start: 20220407, end: 20220418
  4. MIRTAZAPINE [Suspect]
     Active Substance: MIRTAZAPINE
     Dosage: 15 MILLIGRAM, QD
     Dates: start: 20220419, end: 20220424
  5. MIRTAZAPINE [Suspect]
     Active Substance: MIRTAZAPINE
     Dosage: 30 MILLIGRAM, QD
     Dates: start: 20220425
  6. QUETIAPINE [Suspect]
     Active Substance: QUETIAPINE
     Dosage: 25-50MG
     Dates: start: 20220405
  7. BISOPROLOL [Suspect]
     Active Substance: BISOPROLOL
     Dosage: INTAKE FOR A LONG TIME
  8. VALSARTAN [Suspect]
     Active Substance: VALSARTAN
     Dosage: INTAKE FOR A LONG TIME
     Dates: end: 20220407
  9. HYDROCHLOROTHIAZIDE [Suspect]
     Active Substance: HYDROCHLOROTHIAZIDE
     Dosage: INTAKE FOR A LONG TIME
     Dates: end: 20220407
  10. EUTHYROX [Concomitant]
     Active Substance: LEVOTHYROXINE SODIUM
     Dosage: INTAKE FOR A LONG TIME
  11. ZOPICLONE [Concomitant]
     Active Substance: ZOPICLONE
     Dosage: 3.75 MILLIGRAM, QD
     Dates: start: 20220419, end: 20220424
  12. ZOPICLONE [Concomitant]
     Active Substance: ZOPICLONE
     Dosage: 7.5 MILLIGRAM, QD
     Dates: start: 20120101, end: 20220418
  13. PANTOPRAZOLE [Concomitant]
     Active Substance: PANTOPRAZOLE
     Dosage: 80 MILLIGRAM, QD
     Dates: start: 20220315, end: 20220407

REACTIONS (1)
  - Circulatory collapse [Recovered/Resolved]

NARRATIVE: CASE EVENT DATE: 20220407
